FAERS Safety Report 4687692-7 (Version None)
Quarter: 2005Q2

REPORT INFORMATION
  Report Type: 
  Country: None (occurrence: None)
  Receive Date: 20050610
  Receipt Date: 20050531
  Transmission Date: 20051028
  Serious: Yes (Hospitalization)
  Sender: FDA-Public Use
  Company Number: 200511845FR

PATIENT
  Age: 49 Year
  Sex: Female

DRUGS (6)
  1. LASILIX [Suspect]
     Route: 048
     Dates: end: 20050412
  2. HYPERIUM [Suspect]
     Route: 048
     Dates: end: 20050412
  3. COKENZEN [Suspect]
     Route: 048
     Dates: end: 20050412
  4. BEFIZAL [Suspect]
     Route: 048
     Dates: end: 20050412
  5. SOPROL [Suspect]
     Route: 048
     Dates: end: 20050412
  6. NEXEN [Suspect]
     Route: 048
     Dates: start: 20050401, end: 20050412

REACTIONS (9)
  - ALANINE AMINOTRANSFERASE INCREASED [None]
  - ASPARTATE AMINOTRANSFERASE INCREASED [None]
  - BRADYCARDIA [None]
  - HAEMODIALYSIS [None]
  - HEPATIC ENZYME INCREASED [None]
  - HYPOTENSION [None]
  - HYPOTHERMIA [None]
  - RENAL FAILURE ACUTE [None]
  - RHABDOMYOLYSIS [None]
